FAERS Safety Report 9069942 (Version 3)
Quarter: 2013Q2

REPORT INFORMATION
  Report Type: Report from Study
  Country: DE (occurrence: DE)
  Receive Date: 20130215
  Receipt Date: 20130523
  Transmission Date: 20140414
  Serious: Yes (Hospitalization)
  Sender: FDA-Public Use
  Company Number: DE-PFIZER INC-2013050879

PATIENT
  Age: 53 Year
  Sex: Male
  Weight: 103.4 kg

DRUGS (10)
  1. TOFACITINIB CITRATE [Suspect]
     Indication: PSORIASIS
     Dosage: 10 MG, 2X/DAY
     Route: 048
     Dates: start: 20121218, end: 20130117
  2. PANTOZOL [Suspect]
     Dosage: 20 MG, EVERY SECOND DAY
     Route: 048
     Dates: start: 2009
  3. ALLOPURINOL [Suspect]
     Indication: HYPERURICAEMIA
     Dosage: DAILY
     Route: 048
     Dates: start: 2010
  4. CO-DIOVAN [Concomitant]
     Indication: HYPERTENSION
     Dosage: 160/12.5 MG, 1X/DAY
     Route: 048
     Dates: start: 201201
  5. APIDRA [Concomitant]
     Indication: DIABETES MELLITUS
     Dosage: 12-10-10, DAILY
     Route: 058
     Dates: start: 201204
  6. INSUMAN BASAL [Concomitant]
     Indication: DIABETES MELLITUS
     Dosage: 20 IU, DAILY AT NIGHT
     Dates: start: 201204
  7. XELEVIA [Concomitant]
     Indication: DIABETES MELLITUS
     Dosage: UNK
     Route: 048
     Dates: start: 201103
  8. METAMIZOLE [Concomitant]
     Indication: PAIN
     Dosage: 500 MG, 2X/DAY
     Route: 048
     Dates: start: 2007
  9. VALDOXAN [Concomitant]
     Indication: DEPRESSION
     Dosage: 25 MG, ONCE AT NIGHT
     Route: 048
     Dates: start: 20120820
  10. VALORON [Concomitant]
     Indication: PAIN
     Dosage: 100/8 MG, 2X/DAY
     Dates: start: 201204

REACTIONS (1)
  - Breast disorder [Recovered/Resolved]
